FAERS Safety Report 8349352-0 (Version None)
Quarter: 2012Q2

REPORT INFORMATION
  Report Type: 
  Country: None (occurrence: None)
  Receive Date: 20120508
  Receipt Date: 20120430
  Transmission Date: 20120825
  Serious: Yes (Hospitalization, Other)
  Sender: FDA-Public Use
  Company Number: 2012050010

PATIENT
  Age: 23 Year
  Sex: Male

DRUGS (1)
  1. MEPROBAMATE [Suspect]
     Dosage: 200 MG, INTRA-ARTERIAL
     Route: 013

REACTIONS (9)
  - GANGRENE [None]
  - AMPUTATION [None]
  - EXTREMITY NECROSIS [None]
  - CYANOSIS [None]
  - SKIN GRAFT [None]
  - INCORRECT ROUTE OF DRUG ADMINISTRATION [None]
  - WRONG TECHNIQUE IN DRUG USAGE PROCESS [None]
  - PERIPHERAL ISCHAEMIA [None]
  - PAIN IN EXTREMITY [None]
